FAERS Safety Report 7502032-3 (Version None)
Quarter: 2011Q2

REPORT INFORMATION
  Report Type: 
  Country: None (occurrence: None)
  Receive Date: 20110525
  Receipt Date: 20110516
  Transmission Date: 20111010
  Serious: Yes (Death, Other)
  Sender: FDA-Public Use
  Company Number: US-CELGENEUS-163-21880-11023058

PATIENT
  Sex: Female

DRUGS (11)
  1. FERROUS SULFATE TAB [Concomitant]
     Route: 065
  2. DEXAMETHASONE [Concomitant]
     Indication: DEHYDRATION
     Route: 065
  3. MEDICATION [Concomitant]
     Indication: HYPERTENSION
     Route: 065
  4. LEXAPRO [Concomitant]
     Route: 065
  5. GARLIC [Concomitant]
     Route: 065
  6. LEVOTHYROXINE SODIUM [Concomitant]
     Route: 065
  7. COLACE [Concomitant]
     Route: 065
  8. REVLIMID [Suspect]
     Indication: MULTIPLE MYELOMA
     Dosage: 10 MILLIGRAM
     Route: 048
     Dates: start: 20110210, end: 20110421
  9. MULTI-VITAMINS [Concomitant]
     Indication: DEHYDRATION
     Route: 065
  10. LUTEIN [Concomitant]
     Route: 065
  11. ARANESP [Concomitant]
     Route: 065

REACTIONS (3)
  - MULTIPLE MYELOMA [None]
  - FATIGUE [None]
  - DEHYDRATION [None]
